FAERS Safety Report 8538469-3 (Version None)
Quarter: 2012Q3

REPORT INFORMATION
  Report Type: 
  Country: None (occurrence: None)
  Receive Date: 20120718
  Receipt Date: 20120718
  Transmission Date: 20120928
  Serious: Yes (Other)
  Sender: FDA-Public Use
  Company Number: None

PATIENT
  Age: 77 Year
  Sex: Female
  Weight: 63.5036 kg

DRUGS (1)
  1. FORTEO [Suspect]
     Indication: OSTEOPOROSIS
     Dosage: 20 MCH DAILY SUBQ
     Route: 058

REACTIONS (6)
  - ANXIETY [None]
  - RASH [None]
  - PRURITUS [None]
  - DISCOMFORT [None]
  - AGITATION [None]
  - DISORIENTATION [None]
